FAERS Safety Report 19152590 (Version 1)
Quarter: 2021Q2

REPORT INFORMATION
  Report Type: Spontaneous
  Country: US (occurrence: US)
  Receive Date: 20210416
  Receipt Date: 20210416
  Transmission Date: 20210717
  Serious: Yes (Life-Threatening, Hospitalization)
  Sender: FDA-Public Use
  Company Number: None

PATIENT
  Age: 54 Year
  Sex: Female
  Weight: 62.1 kg

DRUGS (1)
  1. HIZENTRA [Suspect]
     Active Substance: HUMAN IMMUNOGLOBULIN G
     Indication: AUTOIMMUNE DISORDER
     Dosage: ?          OTHER FREQUENCY:ONCE;?
     Route: 058
     Dates: start: 20210121, end: 20210121

REACTIONS (5)
  - Angioedema [None]
  - Pharyngeal swelling [None]
  - Cross sensitivity reaction [None]
  - Rash [None]
  - Anaphylactic reaction [None]

NARRATIVE: CASE EVENT DATE: 20210129
